FAERS Safety Report 14080785 (Version 1)
Quarter: 2017Q4

REPORT INFORMATION
  Report Type: Spontaneous
  Country: US (occurrence: US)
  Receive Date: 20171012
  Receipt Date: 20171012
  Transmission Date: 20180321
  Serious: No
  Sender: FDA-Public Use
  Company Number: US-BAYER-2017-179271

PATIENT
  Age: 26 Year
  Sex: Female

DRUGS (3)
  1. MIDOL EXTENDED RELIEF [Suspect]
     Active Substance: NAPROXEN SODIUM
     Dosage: UNK
  2. MIDOL LONG LASTING RELIEF [Suspect]
     Active Substance: ACETAMINOPHEN
     Indication: ABDOMINAL PAIN LOWER
     Dosage: 2 DF, UNK
     Route: 048
     Dates: start: 20170917, end: 20170917
  3. MIDOL EXTENDED RELIEF [Suspect]
     Active Substance: NAPROXEN SODIUM
     Dosage: UNK
     Route: 048

REACTIONS (3)
  - Expired product administered [Unknown]
  - Drug ineffective [Unknown]
  - Drug ineffective [Unknown]

NARRATIVE: CASE EVENT DATE: 2017
